FAERS Safety Report 5591118-9 (Version None)
Quarter: 2008Q1

REPORT INFORMATION
  Report Type: 
  Country: None (occurrence: None)
  Receive Date: 20080110
  Receipt Date: 20080107
  Transmission Date: 20080703
  Serious: Yes (Hospitalization)
  Sender: FDA-Public Use
  Company Number: 2006SP008499

PATIENT
  Age: 68 Year
  Sex: Female
  Weight: 52 kg

DRUGS (6)
  1. PEG-INTRON [Suspect]
     Indication: HEPATITIS C
     Dosage: 80 MCG; QW; SC, 40 MCG; QW; SC, 60 MCG; QW; SC, 40 MCG; QW; SC
     Route: 058
     Dates: start: 20060318, end: 20060328
  2. PEG-INTRON [Suspect]
     Indication: HEPATITIS C
     Dosage: 80 MCG; QW; SC, 40 MCG; QW; SC, 60 MCG; QW; SC, 40 MCG; QW; SC
     Route: 058
     Dates: start: 20060404, end: 20060418
  3. PEG-INTRON [Suspect]
     Indication: HEPATITIS C
     Dosage: 80 MCG; QW; SC, 40 MCG; QW; SC, 60 MCG; QW; SC, 40 MCG; QW; SC
     Route: 058
     Dates: start: 20060425, end: 20060502
  4. PEG-INTRON [Suspect]
     Indication: HEPATITIS C
     Dosage: 80 MCG; QW; SC, 40 MCG; QW; SC, 60 MCG; QW; SC, 40 MCG; QW; SC
     Route: 058
     Dates: start: 20060509
  5. REBETOL [Suspect]
     Indication: HEPATITIS C
     Dosage: 600 MG; QD; PO, 300 MG; QD; PO
     Route: 048
     Dates: start: 20060318, end: 20070219
  6. REBETOL [Suspect]
     Indication: HEPATITIS C
     Dosage: 600 MG; QD; PO, 300 MG; QD; PO
     Route: 048
     Dates: start: 20070101

REACTIONS (3)
  - HEAD INJURY [None]
  - MOVEMENT DISORDER [None]
  - SUBDURAL HAEMATOMA [None]
